FAERS Safety Report 12307532 (Version 1)
Quarter: 2016Q2

REPORT INFORMATION
  Report Type: Spontaneous
  Country: US (occurrence: US)
  Receive Date: 20160426
  Receipt Date: 20160426
  Transmission Date: 20160815
  Serious: No
  Sender: FDA-Public Use
  Company Number: US-JAZZ-2014-US-016155

PATIENT
  Age: 63 Year
  Sex: Female

DRUGS (3)
  1. LUVOX CR [Suspect]
     Active Substance: FLUVOXAMINE MALEATE
     Indication: BIPOLAR DISORDER
  2. FLUVOXAMINE MALEATE. [Suspect]
     Active Substance: FLUVOXAMINE MALEATE
     Indication: OBSESSIVE-COMPULSIVE DISORDER
  3. LUVOX CR [Suspect]
     Active Substance: FLUVOXAMINE MALEATE
     Indication: OBSESSIVE-COMPULSIVE DISORDER
     Dosage: 450 MG, QD
     Route: 048
     Dates: end: 201411

REACTIONS (1)
  - Depression [Not Recovered/Not Resolved]

NARRATIVE: CASE EVENT DATE: 201411
